FAERS Safety Report 5490315-0 (Version None)
Quarter: 2007Q4

REPORT INFORMATION
  Report Type: 
  Country: None (occurrence: None)
  Receive Date: 20071017
  Receipt Date: 20071005
  Transmission Date: 20080405
  Serious: Yes (Hospitalization)
  Sender: FDA-Public Use
  Company Number: 2007BI017057

PATIENT
  Age: 37 Year
  Sex: Female
  Weight: 48.0813 kg

DRUGS (1)
  1. AVONEX [Suspect]
     Indication: MULTIPLE SCLEROSIS
     Dosage: 30 UG;QW;IM
     Route: 030
     Dates: start: 20070421, end: 20070801

REACTIONS (3)
  - COMA [None]
  - MULTIPLE DRUG OVERDOSE ACCIDENTAL [None]
  - SUICIDE ATTEMPT [None]
